FAERS Safety Report 24330165 (Version 3)
Quarter: 2025Q3

REPORT INFORMATION
  Report Type: Spontaneous
  Country: EU (occurrence: EU)
  Receive Date: 20240917
  Receipt Date: 20250809
  Transmission Date: 20251021
  Serious: Yes (Life-Threatening, Hospitalization, Other)
  Sender: ALEXION PHARMACEUTICALS
  Company Number: 2024A210837

PATIENT
  Age: 73 Year
  Sex: Male

DRUGS (11)
  1. TREMELIMUMAB [Suspect]
     Active Substance: TREMELIMUMAB
     Indication: Bladder cancer
     Dosage: 75 MILLIGRAM, QD
     Dates: start: 20240314, end: 20240314
  2. DURVALUMAB [Suspect]
     Active Substance: DURVALUMAB
     Indication: Bladder cancer
     Dosage: 1500 MILLIGRAM, QD
     Dates: start: 20240314, end: 20240314
  3. DURVALUMAB [Suspect]
     Active Substance: DURVALUMAB
     Dosage: 1500 MILLIGRAM, QD
     Dates: start: 20240426, end: 20240426
  4. PADCEV [Suspect]
     Active Substance: ENFORTUMAB VEDOTIN-EJFV
     Indication: Bladder cancer
     Dosage: 1.25 MILLIGRAM/KILOGRAM, QD
     Dates: start: 20240314, end: 20240314
  5. PADCEV [Suspect]
     Active Substance: ENFORTUMAB VEDOTIN-EJFV
     Dosage: 1.25 MILLIGRAM, QD
     Dates: start: 20240325, end: 20240325
  6. PADCEV [Suspect]
     Active Substance: ENFORTUMAB VEDOTIN-EJFV
     Dosage: 1.25 MILLIGRAM, QD
     Dates: start: 20240426, end: 20240426
  7. PADCEV [Suspect]
     Active Substance: ENFORTUMAB VEDOTIN-EJFV
     Dosage: 1.25 MILLIGRAM, QD
     Dates: start: 20240503, end: 20240503
  8. APIXABAN [Suspect]
     Active Substance: APIXABAN
     Indication: Pulmonary embolism
     Dosage: 10 MILLIGRAM, QD
     Dates: start: 20240404
  9. APIXABAN [Suspect]
     Active Substance: APIXABAN
     Indication: Benign prostatic hyperplasia
  10. TAMSULOSIN [Concomitant]
     Active Substance: TAMSULOSIN
     Indication: Benign prostatic hyperplasia
     Dosage: 0.4 MILLIGRAM, QD
  11. TAMSULOSIN [Concomitant]
     Active Substance: TAMSULOSIN
     Dates: start: 2021

REACTIONS (3)
  - Stevens-Johnson syndrome [Recovered/Resolved]
  - Bacterial sepsis [Recovered/Resolved]
  - Loss of consciousness [Unknown]

NARRATIVE: CASE EVENT DATE: 20240507
